FAERS Safety Report 6028839-X (Version None)
Quarter: 2009Q1

REPORT INFORMATION
  Report Type: 
  Country: None (occurrence: None)
  Receive Date: 20090105
  Receipt Date: 20090105
  Transmission Date: 20090719
  Serious: No
  Sender: FDA-Public Use
  Company Number: None

PATIENT
  Age: 62 Year
  Sex: Male
  Weight: 68.04 kg

DRUGS (4)
  1. NEOSPORIN TOP OINT (BACITRACIN/LIDOCAINE/NEOMYCIN/POLYMYXIN) [Suspect]
     Indication: INFECTION
     Dates: start: 20081217, end: 20081217
  2. NEOSPORIN TOP OINT (BACITRACIN/LIDOCAINE/NEOMYCIN/POLYMYXIN) [Suspect]
     Indication: ULCER
     Dates: start: 20081217, end: 20081217
  3. CLOBETASOL PROPIONATE [Suspect]
     Dosage: APPLY BID TOP
     Route: 061
  4. ALUMINUM ACETATE [Suspect]
     Dosage: SOAK QID TOP
     Route: 061

REACTIONS (1)
  - RASH [None]
